FAERS Safety Report 4554694-0 (Version None)
Quarter: 2005Q1

REPORT INFORMATION
  Report Type: 
  Country: None (occurrence: None)
  Receive Date: 20050118
  Receipt Date: 20050104
  Transmission Date: 20050727
  Serious: Yes (Other)
  Sender: FDA-Public Use
  Company Number: FR-JNJFOC-20050100734

PATIENT
  Age: 15 Year
  Sex: Male

DRUGS (1)
  1. PROPULSID [Suspect]
     Route: 049
     Dates: start: 19940101, end: 20041201

REACTIONS (5)
  - CARDIAC DISORDER [None]
  - FATIGUE [None]
  - HYPERHIDROSIS [None]
  - MUSCLE HYPERTROPHY [None]
  - PALLOR [None]
